FAERS Safety Report 17005614 (Version 1)
Quarter: 2019Q4

REPORT INFORMATION
  Report Type: Spontaneous
  Country: US (occurrence: US)
  Receive Date: 20190926
  Receipt Date: 20190926
  Transmission Date: 20200122
  Serious: Yes (Other)
  Sender: FDA-Public Use
  Company Number: None

PATIENT
  Age: 9 Year
  Sex: Female
  Weight: 36.6 kg

DRUGS (8)
  1. METHOTREXATE. [Concomitant]
     Active Substance: METHOTREXATE
  2. PROPOFOL. [Concomitant]
     Active Substance: PROPOFOL
  3. PENTAM [Concomitant]
     Active Substance: PENTAMIDINE ISETHIONATE
  4. DIPRIVAN [Suspect]
     Active Substance: PROPOFOL
     Indication: SEDATIVE THERAPY
     Route: 042
     Dates: start: 20190906
  5. VINCRISTINE [Concomitant]
     Active Substance: VINCRISTINE
  6. KETAMINE [Suspect]
     Active Substance: KETAMINE
  7. DIPRIVAN [Suspect]
     Active Substance: PROPOFOL
     Indication: SEDATIVE THERAPY
     Route: 042
     Dates: start: 20190809
  8. ZOFRAN [Concomitant]
     Active Substance: ONDANSETRON HYDROCHLORIDE

REACTIONS (2)
  - Product quality issue [None]
  - Muscle twitching [None]

NARRATIVE: CASE EVENT DATE: 20190809
